FAERS Safety Report 5760581-2 (Version None)
Quarter: 2008Q2

REPORT INFORMATION
  Report Type: 
  Country: None (occurrence: None)
  Receive Date: 20080602
  Receipt Date: 20080516
  Transmission Date: 20081010
  Serious: Yes (Other)
  Sender: FDA-Public Use
  Company Number: 2008AL005459

PATIENT
  Age: 60 Year
  Sex: Male

DRUGS (5)
  1. DIGOXIN [Suspect]
     Indication: CARDIAC FAILURE
     Dosage: 0.125MG DAILY
  2. SOTALOL HCL [Concomitant]
  3. COUMADIN [Concomitant]
  4. LASIX [Concomitant]
  5. POTASSIUM CHLORIDE [Concomitant]

REACTIONS (4)
  - CARDIAC DISORDER [None]
  - HEART RATE DECREASED [None]
  - HYPOTENSION [None]
  - THERAPEUTIC AGENT TOXICITY [None]
